FAERS Safety Report 8860174 (Version 2)
Quarter: 2012Q4

REPORT INFORMATION
  Report Type: 
  Country: IT (occurrence: IT)
  Receive Date: 20121025
  Receipt Date: 20121126
  Transmission Date: 20130627
  Serious: Yes (Other)
  Sender: FDA-Public Use
  Company Number: IT-JNJFOC-20121010904

PATIENT
  Age: 31 Year
  Sex: Female

DRUGS (8)
  1. DOXORUBICIN [Suspect]
     Indication: EWING^S SARCOMA
     Route: 042
  2. DOXORUBICIN HYDROCHLORIDE [Suspect]
     Indication: EWING^S SARCOMA
     Route: 065
  3. VINCRISTINE [Suspect]
     Indication: EWING^S SARCOMA
     Route: 065
  4. DACTINOMYCIN [Suspect]
     Indication: EWING^S SARCOMA
     Route: 065
  5. CYCLOPHOSPHAMIDE [Suspect]
     Indication: EWING^S SARCOMA
     Route: 065
  6. IFOSFAMIDE [Suspect]
     Indication: EWING^S SARCOMA
     Route: 065
  7. ETOPOSIDE [Suspect]
     Indication: EWING^S SARCOMA
     Route: 065
  8. RADIOTHERAPY [Suspect]
     Indication: EWING^S SARCOMA
     Dosage: 42 Gy
     Route: 065

REACTIONS (2)
  - Non-Hodgkin^s lymphoma [Unknown]
  - Off label use [Unknown]
